FAERS Safety Report 9366096 (Version 1)
Quarter: 2013Q2

REPORT INFORMATION
  Report Type: Spontaneous
  Country: US (occurrence: US)
  Receive Date: 20130625
  Receipt Date: 20130625
  Transmission Date: 20140414
  Serious: No
  Sender: FDA-Public Use
  Company Number: US-BAYER-2013-077552

PATIENT
  Age: 20 Year
  Sex: Female
  Weight: 54.42 kg

DRUGS (2)
  1. ALEVE CAPLET [Suspect]
     Indication: HEADACHE
     Dosage: UNK
     Route: 048
     Dates: start: 20130616
  2. ALEVE CAPLET [Suspect]
     Indication: HEADACHE
     Dosage: UNK
     Dates: start: 20130617

REACTIONS (2)
  - Nausea [Recovered/Resolved]
  - Incorrect dose administered [None]
